FAERS Safety Report 4776539-6 (Version None)
Quarter: 2005Q3

REPORT INFORMATION
  Report Type: 
  Country: None (occurrence: None)
  Receive Date: 20050915
  Receipt Date: 20050905
  Transmission Date: 20060218
  Serious: Yes (Disabling)
  Sender: FDA-Public Use
  Company Number: 2005124408

PATIENT
  Age: 76 Year
  Sex: Female
  Weight: 73 kg

DRUGS (5)
  1. LIPITOR [Suspect]
     Indication: BLOOD CHOLESTEROL INCREASED
     Dosage: 20 MG (20 MG, 1 IN 1 D), ORAL
     Route: 048
     Dates: end: 20050101
  2. ASIG (QUINAPRIL HYDROCHLORIDE) [Concomitant]
  3. ACETAMINOPHEN [Concomitant]
  4. ACETYLSALICYLIC ACID SRT [Concomitant]
  5. EVISTA [Concomitant]

REACTIONS (12)
  - ACTIVITIES OF DAILY LIVING IMPAIRED [None]
  - ARTHRALGIA [None]
  - BACK PAIN [None]
  - COAGULOPATHY [None]
  - DIFFICULTY IN WALKING [None]
  - HYPERTENSION [None]
  - MOBILITY DECREASED [None]
  - MUSCULOSKELETAL STIFFNESS [None]
  - NEURALGIA [None]
  - OSTEOPOROSIS [None]
  - PAIN IN EXTREMITY [None]
  - SLEEP DISORDER [None]
